FAERS Safety Report 17527956 (Version 2)
Quarter: 2020Q2

REPORT INFORMATION
  Report Type: Spontaneous
  Country: AT (occurrence: AT)
  Receive Date: 20200311
  Receipt Date: 20200408
  Transmission Date: 20200713
  Serious: Yes (Hospitalization, Disabling)
  Sender: FDA-Public Use
  Company Number: AT-009507513-2003AUT001727

PATIENT
  Age: 49 Year
  Sex: Male

DRUGS (1)
  1. KEYTRUDA [Suspect]
     Active Substance: PEMBROLIZUMAB
     Indication: METASTATIC MALIGNANT MELANOMA
     Dosage: 200MG I.V. EVERY THREE WEEKS
     Route: 042
     Dates: start: 20191029, end: 20200121

REACTIONS (3)
  - Metabolic acidosis [Recovered/Resolved]
  - Hyperglycaemia [Recovered/Resolved with Sequelae]
  - Type 3 diabetes mellitus [Recovered/Resolved with Sequelae]

NARRATIVE: CASE EVENT DATE: 20200204
